FAERS Safety Report 17550667 (Version 1)
Quarter: 2020Q1

REPORT INFORMATION
  Report Type: Spontaneous
  Country: US (occurrence: US)
  Receive Date: 20200317
  Receipt Date: 20200317
  Transmission Date: 20200409
  Serious: Yes (Other)
  Sender: FDA-Public Use
  Company Number: US-ELI_LILLY_AND_COMPANY-US202003003539

PATIENT
  Sex: Female

DRUGS (7)
  1. VALACYCLOVIR [VALACICLOVIR HYDROCHLORIDE] [Suspect]
     Active Substance: VALACYCLOVIR HYDROCHLORIDE
     Indication: DEAFNESS
  2. TRULICITY [Suspect]
     Active Substance: DULAGLUTIDE
     Indication: DIABETES MELLITUS
     Dosage: 1.5 MG, UNKNOWN
     Route: 058
     Dates: start: 201907
  3. DEXAMETHASONE. [Suspect]
     Active Substance: DEXAMETHASONE
     Indication: PARAESTHESIA
     Dosage: 4 MG, DAILY
     Route: 065
  4. METFORMIN [Concomitant]
     Active Substance: METFORMIN HYDROCHLORIDE
     Indication: DIABETES MELLITUS
  5. VALACYCLOVIR [VALACICLOVIR HYDROCHLORIDE] [Suspect]
     Active Substance: VALACYCLOVIR HYDROCHLORIDE
     Indication: PARAESTHESIA
     Dosage: 1 G, BID
     Route: 065
  6. DEXAMETHASONE. [Suspect]
     Active Substance: DEXAMETHASONE
     Indication: DEAFNESS
  7. LEVEMIR [Concomitant]
     Active Substance: INSULIN DETEMIR
     Indication: DIABETES MELLITUS
     Dosage: 10 U, UNKNOWN

REACTIONS (3)
  - Paraesthesia [Unknown]
  - Blood glucose increased [Unknown]
  - Deafness bilateral [Unknown]
